FAERS Safety Report 18872603 (Version 1)
Quarter: 2021Q1

REPORT INFORMATION
  Report Type: Spontaneous
  Country: US (occurrence: US)
  Receive Date: 20210209
  Receipt Date: 20210209
  Transmission Date: 20210420
  Serious: Yes (Hospitalization)
  Sender: FDA-Public Use
  Company Number: None

PATIENT
  Age: 74 Year
  Sex: Female

DRUGS (25)
  1. PREGABALIN. [Concomitant]
     Active Substance: PREGABALIN
  2. BIOTIN [Concomitant]
     Active Substance: BIOTIN
  3. VITAMIN D3 [Concomitant]
     Active Substance: CHOLECALCIFEROL
  4. TRULICITY [Concomitant]
     Active Substance: DULAGLUTIDE
  5. DIMETHYL FUM 240MG CAP [Suspect]
     Active Substance: DIMETHYL FUMARATE
     Indication: MULTIPLE SCLEROSIS
     Route: 048
     Dates: start: 20201015
  6. ASPIRIN 81 [Concomitant]
     Active Substance: ASPIRIN
  7. BASAGLAR [Concomitant]
     Active Substance: INSULIN GLARGINE
  8. CYMBALTA [Concomitant]
     Active Substance: DULOXETINE HYDROCHLORIDE
  9. ENOXAPARIN [Concomitant]
     Active Substance: ENOXAPARIN
  10. VITAMIN D [Concomitant]
     Active Substance: VITAMIN D NOS
  11. COENZYME Q10 [Concomitant]
     Active Substance: DIETARY SUPPLEMENT\UBIDECARENONE
  12. METFORMIN [Concomitant]
     Active Substance: METFORMIN HYDROCHLORIDE
  13. MUPIROCIN. [Concomitant]
     Active Substance: MUPIROCIN
  14. ATORVASTATIN [Concomitant]
     Active Substance: ATORVASTATIN
  15. CALCIUM 600+D [Concomitant]
     Active Substance: CALCIUM\VITAMIN D
  16. LATANOPROST. [Concomitant]
     Active Substance: LATANOPROST
  17. LANSOPRAZOLE. [Concomitant]
     Active Substance: LANSOPRAZOLE
  18. LOSARTAN POT [Concomitant]
     Active Substance: LOSARTAN POTASSIUM
  19. SUPER B?COMPLEX [Concomitant]
  20. CALCIUM [Concomitant]
     Active Substance: CALCIUM
  21. SMZ/TMP DS [Concomitant]
     Active Substance: SULFAMETHOXAZOLE\TRIMETHOPRIM
  22. HYDROMORPHON [Concomitant]
     Active Substance: HYDROMORPHONE
  23. LYRICA [Concomitant]
     Active Substance: PREGABALIN
  24. METOPROL SUC ER [Concomitant]
     Active Substance: METOPROLOL SUCCINATE
  25. OXYCODONE AND ACETAMINOPHEN [Concomitant]
     Active Substance: ACETAMINOPHEN\OXYCODONE HYDROCHLORIDE

REACTIONS (3)
  - Knee operation [None]
  - Intentional dose omission [None]
  - Pain [None]

NARRATIVE: CASE EVENT DATE: 20210114
